FAERS Safety Report 22832396 (Version 4)
Quarter: 2023Q4

REPORT INFORMATION
  Report Type: Spontaneous
  Country: CH (occurrence: CH)
  Receive Date: 20230817
  Receipt Date: 20231004
  Transmission Date: 20240110
  Serious: Yes (Life-Threatening, Hospitalization, Other)
  Sender: FDA-Public Use
  Company Number: CH-IPSEN Group, Research and Development-2023-03295

PATIENT
  Age: 66 Year
  Sex: Male

DRUGS (5)
  1. LANREOTIDE ACETATE [Suspect]
     Active Substance: LANREOTIDE ACETATE
     Indication: Metastases to liver
     Route: 030
     Dates: start: 20161212, end: 20171005
  2. LANREOTIDE ACETATE [Suspect]
     Active Substance: LANREOTIDE ACETATE
     Indication: Metastases to peritoneum
     Route: 030
     Dates: start: 20200722, end: 20210406
  3. LANREOTIDE ACETATE [Suspect]
     Active Substance: LANREOTIDE ACETATE
     Indication: Metastases to bone
  4. LANREOTIDE ACETATE [Suspect]
     Active Substance: LANREOTIDE ACETATE
     Indication: Carcinoid tumour of the small bowel
  5. XERMELO [Concomitant]
     Active Substance: TELOTRISTAT ETHYL
     Route: 065
     Dates: start: 20230417

REACTIONS (6)
  - Septic shock [Unknown]
  - Cholelithiasis [Unknown]
  - Cholangitis [Unknown]
  - Spontaneous bacterial peritonitis [Unknown]
  - Therapeutic product ineffective [Unknown]
  - Off label use [Unknown]

NARRATIVE: CASE EVENT DATE: 20210401
